FAERS Safety Report 8914801 (Version 1)
Quarter: 2012Q4

REPORT INFORMATION
  Report Type: Report from Study
  Country: JP (occurrence: JP)
  Receive Date: 20121119
  Receipt Date: 20121119
  Transmission Date: 20130627
  Serious: Yes (Other)
  Sender: FDA-Public Use
  Company Number: JP-VERTEX PHARMACEUTICAL INC.-AE-2012-004099

PATIENT
  Age: 59 Year
  Sex: Female

DRUGS (9)
  1. VX-950 (TELAPREVIR) [Suspect]
     Indication: CHRONIC HEPATITIS C
     Dosage: 1500 mg, UNK
     Route: 048
     Dates: start: 20120305, end: 20120308
  2. VX-950 (TELAPREVIR) [Suspect]
     Dosage: 1000 mg, qd
     Dates: start: 20120309, end: 20120310
  3. VX-950 (TELAPREVIR) [Suspect]
     Dosage: 1500 mg, qd
     Route: 048
     Dates: start: 20120311
  4. PEGINTRON [Suspect]
     Indication: CHRONIC HEPATITIS C
     Dosage: 1.67 ?g/kg, weekly
     Route: 058
     Dates: start: 20120305
  5. REBETOL [Suspect]
     Indication: CHRONIC HEPATITIS C
     Route: 048
     Dates: start: 20120305, end: 20120321
  6. REBETOL [Suspect]
     Dosage: 400 mg, qd
     Route: 048
     Dates: start: 20120322, end: 20120323
  7. REBETOL [Suspect]
     Dosage: 200 mg, UNK
     Route: 048
     Dates: start: 20120324, end: 20120405
  8. REBETOL [Suspect]
     Dosage: 200 mg, UNK
     Route: 048
     Dates: start: 20120419
  9. LOXONIN [Concomitant]
     Dosage: 60 mg, prn
     Route: 048
     Dates: start: 20120316, end: 20120405

REACTIONS (1)
  - Decreased appetite [Recovered/Resolved]
